FAERS Safety Report 6341730-4 (Version None)
Quarter: 2009Q3

REPORT INFORMATION
  Report Type: 
  Country: None (occurrence: None)
  Receive Date: 20090904
  Receipt Date: 20090824
  Transmission Date: 20100115
  Serious: Yes (Other)
  Sender: FDA-Public Use
  Company Number: NO-PFIZER INC-2009256064

PATIENT
  Age: 69 Year

DRUGS (1)
  1. TOVIAZ [Suspect]
     Dosage: 8 MG, UNK
     Dates: start: 20090101, end: 20090101

REACTIONS (4)
  - BLADDER CANCER [None]
  - CONSTIPATION [None]
  - DRUG INEFFECTIVE [None]
  - DRY MOUTH [None]
